FAERS Safety Report 10378840 (Version 1)
Quarter: 2014Q3

REPORT INFORMATION
  Report Type: Spontaneous
  Country: GB (occurrence: GB)
  Receive Date: 20140812
  Receipt Date: 20140812
  Transmission Date: 20150326
  Serious: Yes (Hospitalization)
  Sender: FDA-Public Use
  Company Number: GB-GLAXOSMITHKLINE-B1021684A

PATIENT
  Age: 63 Year
  Sex: Male
  Weight: 103 kg

DRUGS (12)
  1. METFORMIN [Concomitant]
     Active Substance: METFORMIN HYDROCHLORIDE
  2. MORPHINE [Concomitant]
     Active Substance: MORPHINE
  3. PERINDOPRIL [Concomitant]
     Active Substance: PERINDOPRIL
  4. ORLISTAT [Suspect]
     Active Substance: ORLISTAT
     Indication: OBESITY
     Dosage: 3IUAX PER DAY
     Route: 048
     Dates: start: 20140117, end: 20140607
  5. INDAPAMIDE. [Concomitant]
     Active Substance: INDAPAMIDE
  6. SENNA [Concomitant]
     Active Substance: SENNA LEAF\SENNOSIDES\SENNOSIDES A AND B
  7. AMITRIPTYLINE [Concomitant]
     Active Substance: AMITRIPTYLINE
  8. BETAHISTINE [Concomitant]
     Active Substance: BETAHISTINE
  9. LANSOPRAZOLE. [Concomitant]
     Active Substance: LANSOPRAZOLE
  10. LERCANIDIPINE [Concomitant]
     Active Substance: LERCANIDIPINE
  11. DOXAZOSIN [Concomitant]
     Active Substance: DOXAZOSIN\DOXAZOSIN MESYLATE
  12. SPIRONOLACTONE. [Concomitant]
     Active Substance: SPIRONOLACTONE

REACTIONS (3)
  - Vomiting [Recovered/Resolved]
  - Renal failure acute [Recovered/Resolved]
  - Constipation [Recovered/Resolved]

NARRATIVE: CASE EVENT DATE: 20140607
